FAERS Safety Report 11798193 (Version 1)
Quarter: 2015Q4

REPORT INFORMATION
  Report Type: Spontaneous
  Country: US (occurrence: US)
  Receive Date: 20151203
  Receipt Date: 20151203
  Transmission Date: 20160305
  Serious: Yes (Other)
  Sender: FDA-Public Use
  Company Number: US-REGENERON PHARMACEUTICALS, INC.-2015-10781

PATIENT

DRUGS (2)
  1. AVASTIN [Suspect]
     Active Substance: BEVACIZUMAB
     Indication: PRODUCT USED FOR UNKNOWN INDICATION
     Dosage: UNK
     Dates: start: 20150107, end: 20150107
  2. EYLEA [Suspect]
     Active Substance: AFLIBERCEPT
     Indication: NEOVASCULAR AGE-RELATED MACULAR DEGENERATION
     Dosage: 0.05 ML MILLILITRE(S), RANGED FROM 5-9 WEEKS
     Route: 031
     Dates: start: 20130919, end: 20141105

REACTIONS (3)
  - Vitritis [Recovered/Resolved]
  - Non-infectious endophthalmitis [Recovered/Resolved]
  - Visual acuity reduced transiently [Recovered/Resolved with Sequelae]

NARRATIVE: CASE EVENT DATE: 20150122
